FAERS Safety Report 4622154-4 (Version None)
Quarter: 2005Q1

REPORT INFORMATION
  Report Type: 
  Country: None (occurrence: None)
  Receive Date: 20050328
  Receipt Date: 20050318
  Transmission Date: 20050727
  Serious: Yes (Hospitalization)
  Sender: FDA-Public Use
  Company Number: 2005-02-1752

PATIENT
  Age: 50 Year
  Sex: Female
  Weight: 47 kg

DRUGS (7)
  1. REBETOL [Suspect]
     Indication: HEPATITIS C
     Dosage: 600-200MG* ORAL
     Route: 048
     Dates: start: 20050122, end: 20050220
  2. REBETOL [Suspect]
     Indication: HEPATITIS C
     Dosage: 600-200MG* ORAL
     Route: 048
     Dates: start: 20050122
  3. REBETOL [Suspect]
     Indication: HEPATITIS C
     Dosage: 600-200MG* ORAL
     Route: 048
     Dates: start: 20050224
  4. INTRON A [Suspect]
     Indication: HEPATITIS C
     Dosage: 6-3MIU*QD-TIW INTRAMUSCULAR
     Route: 030
     Dates: start: 20050122, end: 20050201
  5. INTRON A [Suspect]
     Indication: HEPATITIS C
     Dosage: 6-3MIU*QD-TIW INTRAMUSCULAR
     Route: 030
     Dates: start: 20050201, end: 20050220
  6. INTRON A [Suspect]
     Indication: HEPATITIS C
     Dosage: 6-3MIU*QD-TIW INTRAMUSCULAR
     Route: 030
     Dates: start: 20050122
  7. INTRON A [Suspect]
     Indication: HEPATITIS C
     Dosage: 6-3MIU*QD-TIW INTRAMUSCULAR
     Route: 030
     Dates: start: 20050224

REACTIONS (2)
  - CONVULSION [None]
  - DEPRESSED LEVEL OF CONSCIOUSNESS [None]
